FAERS Safety Report 8172634-2 (Version None)
Quarter: 2012Q1

REPORT INFORMATION
  Report Type: 
  Country: None (occurrence: None)
  Receive Date: 20120229
  Receipt Date: 20120227
  Transmission Date: 20120608
  Serious: No
  Sender: FDA-Public Use
  Company Number: US-PFIZER INC-2012051793

PATIENT
  Sex: Female
  Weight: 68.027 kg

DRUGS (4)
  1. IBUPROFEN (ADVIL) [Suspect]
     Indication: ARTHRALGIA
  2. DIOVAN [Concomitant]
     Indication: HYPERTENSION
     Dosage: UNK
  3. DOXEPIN [Concomitant]
     Dosage: 10 MG, UNK
  4. IBUPROFEN (ADVIL) [Suspect]
     Indication: MUSCULOSKELETAL STIFFNESS
     Dosage: 200 MG, 3X/DAY
     Route: 048
     Dates: start: 20100601, end: 20120220

REACTIONS (2)
  - ECZEMA [None]
  - ERYTHEMA [None]
